FAERS Safety Report 4615736-7 (Version None)
Quarter: 2005Q2

REPORT INFORMATION
  Report Type: 
  Country: None (occurrence: None)
  Receive Date: 20050310
  Receipt Date: 20041130
  Transmission Date: 20051028
  Serious: Yes (Other)
  Sender: FDA-Public Use
  Company Number: F03200400114

PATIENT
  Age: 56 Year
  Sex: Male

DRUGS (4)
  1. ELOXATIN [Suspect]
     Indication: COLORECTAL CANCER METASTATIC
     Dosage: 85 MG/M2 OTHER - INTRAVENOUS NOS
     Route: 042
     Dates: start: 20040913, end: 20040913
  2. CETUXIMAB - SOLUTION [Suspect]
     Indication: COLORECTAL CANCER METASTATIC
     Dosage: 400 MG/M2 ON DAY 1, AND 250 MG/M2 WEEKLY THEREAFTER - INTRAVENOUS NOS
     Route: 042
     Dates: start: 20040920, end: 20040920
  3. FLUOROURACIL [Suspect]
     Indication: COLORECTAL CANCER METASTATIC
     Dosage: MG/M2 IV BOLUS, FOLLOWED BY 2400 MG/M2 IV CONTINUOUSLY OVER 46-48 HOURS - INTRAVENOUS NOS
     Route: 042
     Dates: start: 20040913, end: 20040913
  4. LEUCOVORIN CALCIUM [Suspect]
     Indication: COLORECTAL CANCER METASTATIC
     Dosage: INTRAVENOUS NOS
     Route: 042
     Dates: start: 20040913, end: 20040913

REACTIONS (2)
  - DIARRHOEA [None]
  - NAUSEA [None]
